FAERS Safety Report 13467616 (Version 3)
Quarter: 2017Q3

REPORT INFORMATION
  Report Type: Spontaneous
  Country: US (occurrence: US)
  Receive Date: 20170421
  Receipt Date: 20170721
  Transmission Date: 20171127
  Serious: Yes (Hospitalization, Other)
  Sender: FDA-Public Use
  Company Number: US-BRISTOL-MYERS SQUIBB COMPANY-BMS-2017-032740

PATIENT
  Sex: Male
  Weight: 63 kg

DRUGS (6)
  1. ELIQUIS [Suspect]
     Active Substance: APIXABAN
     Indication: PRODUCT USED FOR UNKNOWN INDICATION
     Dosage: 5 MG, BID
     Route: 048
     Dates: start: 20170414, end: 20170414
  2. CEFTRIAXONE. [Concomitant]
     Active Substance: CEFTRIAXONE
     Indication: LEGIONELLA TEST
     Dosage: UNK
     Route: 042
     Dates: start: 20170411
  3. ELIQUIS [Suspect]
     Active Substance: APIXABAN
     Indication: CEREBROVASCULAR ACCIDENT PROPHYLAXIS
     Dosage: 20 MG, BID
     Route: 048
     Dates: start: 20170413, end: 20170413
  4. FAMOTIDINE. [Concomitant]
     Active Substance: FAMOTIDINE
     Indication: DYSPEPSIA
     Dosage: 5 MG, QD
     Route: 048
  5. LEVAQUIN [Concomitant]
     Active Substance: LEVOFLOXACIN
     Indication: LEGIONELLA TEST
     Dosage: 750 MG, UNK
     Route: 042
     Dates: start: 20170411
  6. ZITHROMAX [Concomitant]
     Active Substance: AZITHROMYCIN DIHYDRATE
     Indication: LEGIONELLA TEST
     Dosage: 500 MG, UNK
     Route: 042
     Dates: start: 20170411

REACTIONS (7)
  - Pneumonia viral [Recovered/Resolved]
  - Haematochezia [Unknown]
  - Splenic haematoma [Recovered/Resolved with Sequelae]
  - Drug dispensing error [Unknown]
  - Splenomegaly [Unknown]
  - Incorrect drug administration rate [Unknown]
  - Accidental overdose [Unknown]
